FAERS Safety Report 10084709 (Version 1)
Quarter: 2014Q2

REPORT INFORMATION
  Report Type: Spontaneous
  Country: US (occurrence: CH)
  Receive Date: 20140417
  Receipt Date: 20140417
  Transmission Date: 20141212
  Serious: Yes (Hospitalization)
  Sender: FDA-Public Use
  Company Number: CH-FRI-1000066586

PATIENT
  Sex: Male
  Weight: 59 kg

DRUGS (3)
  1. ROFLUMILAST [Suspect]
     Dosage: 500 MCG
     Route: 048
     Dates: start: 201402, end: 20140228
  2. SEEBRI [Suspect]
  3. VENTOLIN [Concomitant]

REACTIONS (3)
  - Anaemia [Recovering/Resolving]
  - Diarrhoea [Recovered/Resolved]
  - Haematochezia [Recovered/Resolved]
